FAERS Safety Report 9134577 (Version 2)
Quarter: 2013Q2

REPORT INFORMATION
  Report Type: Spontaneous
  Country: US (occurrence: US)
  Receive Date: 20130304
  Receipt Date: 20130417
  Transmission Date: 20140414
  Serious: Yes (Other)
  Sender: FDA-Public Use
  Company Number: PHEH2013US004860

PATIENT
  Sex: Female

DRUGS (1)
  1. DIOVAN HCT [Suspect]
     Dosage: 1 DF (160 MG VALS AND 12.5 MG HCTZ), UKN
     Route: 048

REACTIONS (4)
  - Carpal tunnel syndrome [Unknown]
  - Sensory loss [Unknown]
  - Pain [Unknown]
  - Product package associated injury [Unknown]
